FAERS Safety Report 7230940-X (Version None)
Quarter: 2011Q1

REPORT INFORMATION
  Report Type: 
  Country: None (occurrence: None)
  Receive Date: 20110118
  Receipt Date: 20110107
  Transmission Date: 20110831
  Serious: Yes (Other)
  Sender: FDA-Public Use
  Company Number: US-ROCHE-731452

PATIENT
  Sex: Female
  Weight: 72.6 kg

DRUGS (4)
  1. MINOCYCLINE HCL [Concomitant]
  2. MERIDIA [Concomitant]
  3. ACCUTANE [Suspect]
     Indication: ACNE
     Dosage: INDICATION: FOLLICULITIS
     Route: 065
     Dates: start: 19950101, end: 19980101
  4. RETIN-A [Concomitant]

REACTIONS (7)
  - GASTROINTESTINAL INJURY [None]
  - IRRITABLE BOWEL SYNDROME [None]
  - DIZZINESS [None]
  - PYREXIA [None]
  - CROHN'S DISEASE [None]
  - PNEUMONIA [None]
  - ANAL FISSURE [None]
